FAERS Safety Report 9961366 (Version 1)
Quarter: 2014Q1

REPORT INFORMATION
  Report Type: Report from Study
  Country: BR (occurrence: BR)
  Receive Date: 20140305
  Receipt Date: 20140305
  Transmission Date: 20141002
  Serious: Yes (Death)
  Sender: FDA-Public Use
  Company Number: PHHY2014BR024671

PATIENT
  Age: 38 Year
  Sex: Male
  Weight: 46 kg

DRUGS (3)
  1. SANDOSTATIN LAR [Suspect]
     Indication: ANALGESIC THERAPY
     Dosage: 30 MG,(1 AMPOULE) MONTHLY
     Dates: start: 201308
  2. SANDOSTATIN LAR [Suspect]
     Indication: OFF LABEL USE
     Dosage: 30 MG,(1 AMPOULE) MONTHLY
     Dates: start: 201309
  3. SANDOSTATIN LAR [Suspect]
     Dosage: 30 MG,(1 AMPOULE) MONTHLY
     Dates: start: 201310, end: 201310

REACTIONS (9)
  - Multi-organ failure [Fatal]
  - Malignant neoplasm progression [Fatal]
  - Cachexia [Fatal]
  - Hepatic cancer metastatic [Fatal]
  - Weight decreased [Unknown]
  - Pain [Unknown]
  - Spinal pain [Unknown]
  - Back pain [Unknown]
  - Asthenia [Unknown]
